FAERS Safety Report 9335919 (Version 1)
Quarter: 2013Q2

REPORT INFORMATION
  Report Type: Spontaneous
  Country: US (occurrence: US)
  Receive Date: 20130606
  Receipt Date: 20130606
  Transmission Date: 20140414
  Serious: No
  Sender: FDA-Public Use
  Company Number: US-AMGEN-USASP2013016815

PATIENT
  Age: 61 Year
  Sex: Female

DRUGS (15)
  1. PROLIA [Suspect]
     Indication: OSTEOPOROSIS POSTMENOPAUSAL
     Dosage: UNK
     Dates: start: 201211
  2. CALCICHEW [Concomitant]
  3. VITAMIN D                          /00107901/ [Concomitant]
  4. VITAMIN K                          /00032401/ [Concomitant]
  5. CALCIUM [Concomitant]
     Dosage: 666 MG, QHS
  6. ARMOUR THYROID [Concomitant]
     Indication: HYPOTHYROIDISM
  7. OMEPRAZOLE                         /00661202/ [Concomitant]
  8. B COMPLEX                          /00212701/ [Concomitant]
  9. VITAMIN B12                        /00056201/ [Concomitant]
  10. VITAMIN D3 [Concomitant]
     Dosage: UNK UNK, BID
  11. VITAMIN C                          /00008001/ [Concomitant]
  12. MULTIVITAMIN                       /00097801/ [Concomitant]
  13. GARLIC                             /01570501/ [Concomitant]
  14. CHROMIUM PICOLINATE [Concomitant]
  15. OMEPRAZOLE [Concomitant]

REACTIONS (7)
  - Stress [Not Recovered/Not Resolved]
  - Anxiety [Not Recovered/Not Resolved]
  - Feeling abnormal [Unknown]
  - Alopecia [Unknown]
  - Trichorrhexis [Unknown]
  - Hair texture abnormal [Unknown]
  - Fatigue [Unknown]
